FAERS Safety Report 23014199 (Version 2)
Quarter: 2024Q2

REPORT INFORMATION
  Report Type: Spontaneous
  Country: US (occurrence: US)
  Receive Date: 20231002
  Receipt Date: 20240628
  Transmission Date: 20240716
  Serious: Yes (Other)
  Sender: FDA-Public Use
  Company Number: US-ABBVIE-5426204

PATIENT
  Sex: Male

DRUGS (1)
  1. REFRESH RELIEVA PRESERVATIVE FREE [Suspect]
     Active Substance: CARBOXYMETHYLCELLULOSE SODIUM\GLYCERIN
     Indication: Dry eye
     Dosage: CMC 5MG/ML; GLYCERIN 9MG.ML SOLUTION MDPF; DURATION: A LONG TIME?START DATE: A YEAR OR MORE
     Route: 047

REACTIONS (1)
  - Cataract [Unknown]
